FAERS Safety Report 20371973 (Version 1)
Quarter: 2022Q1

REPORT INFORMATION
  Report Type: Spontaneous
  Country: CN (occurrence: CN)
  Receive Date: 20220124
  Receipt Date: 20220124
  Transmission Date: 20220423
  Serious: Yes (Other)
  Sender: FDA-Public Use
  Company Number: CN-NAPPMUNDI-GBR-2022-0094384

PATIENT
  Age: 79 Year
  Sex: Female
  Weight: 45 kg

DRUGS (3)
  1. OXYCODONE HYDROCHLORIDE [Suspect]
     Active Substance: OXYCODONE HYDROCHLORIDE
     Indication: Cancer pain
     Dosage: 40 MG, Q12H
     Route: 048
     Dates: start: 20211226, end: 20211226
  2. OXYCODONE HYDROCHLORIDE [Suspect]
     Active Substance: OXYCODONE HYDROCHLORIDE
     Dosage: 40 MG, Q12H
     Route: 048
     Dates: start: 20211222, end: 20211222
  3. OXYCODONE HYDROCHLORIDE [Suspect]
     Active Substance: OXYCODONE HYDROCHLORIDE
     Dosage: 20 MG, Q12H
     Route: 048
     Dates: start: 20211220, end: 20211221

REACTIONS (14)
  - Depressed level of consciousness [Recovering/Resolving]
  - Coma [Recovering/Resolving]
  - Oxygen saturation decreased [Recovering/Resolving]
  - Bronchospasm [Unknown]
  - Apathy [Unknown]
  - Asthma [Unknown]
  - Wheezing [Unknown]
  - Rales [Unknown]
  - Tachypnoea [Unknown]
  - Breath sounds abnormal [Unknown]
  - Oedema peripheral [Unknown]
  - Miosis [Recovering/Resolving]
  - Lethargy [Unknown]
  - Somnolence [Unknown]

NARRATIVE: CASE EVENT DATE: 20211228
